FAERS Safety Report 17688968 (Version 1)
Quarter: 2020Q2

REPORT INFORMATION
  Report Type: Spontaneous
  Country: US (occurrence: US)
  Receive Date: 20200421
  Receipt Date: 20200421
  Transmission Date: 20200714
  Serious: Yes (Hospitalization)
  Sender: FDA-Public Use
  Company Number: US-VERTEX PHARMACEUTICALS-2020-008963

PATIENT
  Sex: Male
  Weight: 26 kg

DRUGS (1)
  1. SYMDEKO [Suspect]
     Active Substance: IVACAFTOR\TEZACAFTOR
     Indication: CYSTIC FIBROSIS
     Dosage: 50MG TEZACAFTOR/ 75MG IVACAFTOR: 1 TAB EVERY AM; 75MG IVACAFTOR: 1 TAB EVERY PM
     Route: 048
     Dates: start: 20190827

REACTIONS (2)
  - Somnolence [Unknown]
  - Pneumonia staphylococcal [Unknown]
